FAERS Safety Report 15291085 (Version 3)
Quarter: 2019Q1

REPORT INFORMATION
  Report Type: Report from Study
  Country: CN (occurrence: CN)
  Receive Date: 20180817
  Receipt Date: 20190128
  Transmission Date: 20190417
  Serious: Yes (Death, Hospitalization)
  Sender: FDA-Public Use
  Company Number: CN-ASTRAZENECA-2018SE93636

PATIENT
  Age: 7648 Day
  Sex: Female

DRUGS (12)
  1. MEDI4736 [Suspect]
     Active Substance: DURVALUMAB
     Indication: NON-SMALL CELL LUNG CANCER
     Route: 042
     Dates: start: 20180606, end: 20180706
  2. MEGESTROL ACETATE. [Concomitant]
     Active Substance: MEGESTROL ACETATE
     Indication: DECREASED APPETITE
     Route: 048
     Dates: start: 20180614
  3. OXYCONTIN [Concomitant]
     Active Substance: OXYCODONE HYDROCHLORIDE
     Indication: PAIN
     Route: 048
  4. THYMOSIN ALPHA 1 [Concomitant]
     Indication: IMMUNE SYSTEM DISORDER
     Dosage: 1.6G ONCE/SINGLE ADMINISTRATION
     Route: 058
     Dates: start: 20180718, end: 20180720
  5. AMBROXOL HYDROCHLORIDE [Concomitant]
     Active Substance: AMBROXOL HYDROCHLORIDE
     Indication: PRODUCTIVE COUGH
     Route: 042
     Dates: start: 20180718, end: 20180721
  6. ALBUMIN PREPARED FROM HUMAN PLASMA [Concomitant]
     Indication: BLOOD ALBUMIN INCREASED
     Route: 042
     Dates: start: 20180704, end: 20180704
  7. LANSOPRAZOLE. [Concomitant]
     Active Substance: LANSOPRAZOLE
     Indication: GASTRIC PH DECREASED
     Route: 042
     Dates: start: 20180718, end: 20180719
  8. SHIOMARIN [Concomitant]
     Active Substance: LATAMOXEF DISODIUM
     Indication: INFECTION
     Dosage: 1.5G ONCE/SINGLE ADMINISTRATION
     Route: 042
     Dates: start: 20180718, end: 20180719
  9. METHYLPREDNISOLONE SODIUM SUCCINATE. [Concomitant]
     Active Substance: METHYLPREDNISOLONE SODIUM SUCCINATE
     Indication: INFLAMMATION
     Dosage: 40.0MG ONCE/SINGLE ADMINISTRATION
     Route: 042
     Dates: start: 20180718, end: 20180719
  10. MEDI4736 [Suspect]
     Active Substance: DURVALUMAB
     Indication: NON-SMALL CELL LUNG CANCER
     Route: 042
     Dates: start: 20180704, end: 20180704
  11. ZOMETA [Concomitant]
     Active Substance: ZOLEDRONIC ACID
     Indication: PROPHYLAXIS
     Dosage: 4.0MG ONCE/SINGLE ADMINISTRATION
     Route: 042
     Dates: start: 20180606, end: 20180606
  12. DOXOFYLLINE [Concomitant]
     Active Substance: DOXOFYLLINE
     Indication: ASTHMA
     Route: 042
     Dates: start: 20180718, end: 20180721

REACTIONS (1)
  - Pneumonia [Fatal]

NARRATIVE: CASE EVENT DATE: 20180719
